FAERS Safety Report 16395588 (Version 7)
Quarter: 2020Q2

REPORT INFORMATION
  Report Type: Report from Study
  Country: US (occurrence: US)
  Receive Date: 20190605
  Receipt Date: 20200617
  Transmission Date: 20200713
  Serious: Yes (Hospitalization, Other)
  Sender: FDA-Public Use
  Company Number: US-ACTELION-A-US2018-170353

PATIENT
  Age: 39 Year
  Sex: Female

DRUGS (2)
  1. ORENITRAM [Suspect]
     Active Substance: TREPROSTINIL
     Indication: PRODUCT USED FOR UNKNOWN INDICATION
     Dosage: UNK
     Route: 065
     Dates: start: 201909, end: 201909
  2. OPSUMIT [Suspect]
     Active Substance: MACITENTAN
     Indication: PULMONARY HYPERTENSION
     Dosage: 10 MG, QD
     Route: 048
     Dates: start: 20171209

REACTIONS (12)
  - Pulmonary mass [Recovered/Resolved]
  - Anaemia [Unknown]
  - Lung adenocarcinoma [Recovered/Resolved]
  - Device related sepsis [Recovered/Resolved]
  - Back pain [Not Recovered/Not Resolved]
  - Cough [Not Recovered/Not Resolved]
  - Hospitalisation [Unknown]
  - Pyrexia [Recovered/Resolved]
  - Lung lobectomy [Recovered/Resolved]
  - Therapeutic response decreased [Unknown]
  - Catheter site pain [Unknown]
  - Dyspnoea [Recovered/Resolved]

NARRATIVE: CASE EVENT DATE: 20180310
